FAERS Safety Report 5990217-7 (Version None)
Quarter: 2008Q4

REPORT INFORMATION
  Report Type: 
  Country: None (occurrence: None)
  Receive Date: 20081211
  Receipt Date: 20010207
  Transmission Date: 20090506
  Serious: Yes (Life-Threatening, Hospitalization)
  Sender: FDA-Public Use
  Company Number: US-WYE-H07127808

PATIENT
  Age: 30 Year
  Sex: Female
  Weight: 54.48 kg

DRUGS (8)
  1. PHENERGAN HCL [Suspect]
     Dosage: UNKNOWN
     Dates: start: 19981201, end: 19981201
  2. EPINEPHRINE [Suspect]
     Indication: LARYNGOSPASM
     Dosage: 0.3 ML OF 1000 MCG/ML
     Route: 058
     Dates: start: 19981201, end: 19981201
  3. EPINEPHRINE [Suspect]
     Indication: HYPERSENSITIVITY
  4. VENTOLIN [Suspect]
     Dosage: 2.5 MG
     Route: 055
     Dates: start: 19981201, end: 19981201
  5. SOLU-MEDROL [Suspect]
     Dosage: 125 MG
     Route: 042
     Dates: start: 19981201, end: 19981201
  6. TORADOL [Suspect]
     Dosage: UNSPECIFIED
     Dates: start: 19981201, end: 19981201
  7. BENADRYL [Suspect]
     Indication: HYPERSENSITIVITY
     Route: 042
     Dates: start: 19981201, end: 19981201
  8. PEPCID [Suspect]
     Indication: HYPERSENSITIVITY
     Dosage: 20 MG ONE TIME
     Route: 042
     Dates: start: 19981201, end: 19981201

REACTIONS (6)
  - CHEST DISCOMFORT [None]
  - HAEMORRHAGE [None]
  - HEMIPLEGIA [None]
  - NAUSEA [None]
  - VENTRICULAR EXTRASYSTOLES [None]
  - VOMITING [None]
